FAERS Safety Report 5169819-6 (Version None)
Quarter: 2006Q4

REPORT INFORMATION
  Report Type: 
  Country: None (occurrence: None)
  Receive Date: 20061212
  Receipt Date: 20061130
  Transmission Date: 20070319
  Serious: Yes (Death, Hospitalization, Other)
  Sender: FDA-Public Use
  Company Number: KR-BRISTOL-MYERS SQUIBB COMPANY-13597729

PATIENT
  Age: 83 Year
  Sex: Male

DRUGS (4)
  1. HYDREA [Suspect]
     Indication: CHRONIC MYELOID LEUKAEMIA
     Route: 048
  2. ALLOPURINOL [Concomitant]
     Indication: CHRONIC MYELOID LEUKAEMIA
  3. GEMCITABINE [Concomitant]
  4. AMINOGLYCOSIDES [Concomitant]
     Indication: PANCREATIC CARCINOMA

REACTIONS (7)
  - DIARRHOEA INFECTIOUS [None]
  - NEUTROPENIA [None]
  - PLEURAL EFFUSION [None]
  - RASH [None]
  - RENAL FAILURE ACUTE [None]
  - RESPIRATORY FAILURE [None]
  - THROMBOCYTOPENIA [None]
